FAERS Safety Report 10084720 (Version 2)
Quarter: 2014Q2

REPORT INFORMATION
  Report Type: Report from Study
  Country: AU (occurrence: AU)
  Receive Date: 20140417
  Receipt Date: 20140423
  Transmission Date: 20141212
  Serious: Yes (Hospitalization)
  Sender: FDA-Public Use
  Company Number: AU-PFIZER INC-2014101252

PATIENT
  Age: 72 Year
  Sex: Female
  Weight: 54.3 kg

DRUGS (14)
  1. TEMSIROLIMUS [Suspect]
     Indication: MANTLE CELL LYMPHOMA
     Dosage: 75 MG, WEEKLY
     Route: 042
     Dates: start: 20131211, end: 20140326
  2. DESIPRAMINE [Suspect]
     Indication: MANTLE CELL LYMPHOMA
     Dosage: 50 MG, WEEKLY FOR 2 WEEKS
     Route: 048
     Dates: start: 20131204, end: 20131211
  3. TIOTROPIUM [Concomitant]
     Indication: EMPHYSEMA
     Dosage: 18 MG, DAILY
     Route: 048
     Dates: start: 20130717
  4. ROSUVASTATIN [Concomitant]
     Indication: HYPERLIPIDAEMIA
     Dosage: 10 MG, DAILY
     Route: 048
     Dates: start: 20030101
  5. PANADOL OSTEO [Concomitant]
     Indication: NECK PAIN
     Dosage: 1000 MG, 2X/DAY
     Route: 048
     Dates: start: 20131104
  6. PHENERGAN [Concomitant]
     Indication: PROPHYLAXIS
     Dosage: 6.25 MG, WEEKLY
     Route: 042
     Dates: start: 20131211
  7. DEXAMETHASONE [Concomitant]
     Indication: PROPHYLAXIS
     Dosage: 8 MG, WEEKLY
     Route: 048
     Dates: start: 20131211
  8. TROPISETRON [Concomitant]
     Indication: PROPHYLAXIS
     Dosage: 5 MG, WEEKLY
     Route: 048
     Dates: start: 20131211
  9. PARACETAMOL [Concomitant]
     Indication: PROPHYLAXIS
     Dosage: 1000 MG, WEEKLY
     Route: 048
     Dates: start: 20131211
  10. SERETIDE [Concomitant]
     Indication: PROPHYLAXIS
     Dosage: 250/25UG
     Route: 048
     Dates: start: 20140104
  11. VENTOLIN [Concomitant]
     Indication: PROPHYLAXIS
     Dosage: UNK
     Route: 048
     Dates: start: 20140104
  12. GASTRO-STOP [Concomitant]
     Indication: DIARRHOEA
     Dosage: 2 MG, AS NEEDED
     Route: 048
     Dates: start: 20140116
  13. DOXYCYCLINE [Concomitant]
     Indication: UPPER RESPIRATORY TRACT INFECTION
     Dosage: 100 MG, DAILY
     Route: 048
     Dates: start: 20140323, end: 20140329
  14. AUGMENTIN DUO FORTE [Concomitant]
     Indication: PYREXIA
     Dosage: 500 MG, 2X/DAY
     Route: 048
     Dates: start: 20140402

REACTIONS (1)
  - Rhinovirus infection [Recovered/Resolved with Sequelae]
